FAERS Safety Report 6757694-5 (Version None)
Quarter: 2010Q2

REPORT INFORMATION
  Report Type: 
  Country: None (occurrence: None)
  Receive Date: 20100524
  Receipt Date: 20100304
  Transmission Date: 20101027
  Serious: No
  Sender: FDA-Public Use
  Company Number: 008337

PATIENT
  Sex: Female

DRUGS (7)
  1. CIMZIA [Suspect]
     Indication: CROHN'S DISEASE
     Dosage: (400 MG MONTHLY SUBCUTANEOUS)
     Route: 058
  2. PREDNISONE [Concomitant]
  3. PENTASA [Concomitant]
  4. PRILOSEC [Concomitant]
  5. TUMS [Concomitant]
  6. COLACE [Concomitant]
  7. SENOKOT [Concomitant]

REACTIONS (1)
  - INJECTION SITE DISCOLOURATION [None]
